FAERS Safety Report 8520719-0 (Version None)
Quarter: 2012Q3

REPORT INFORMATION
  Report Type: 
  Country: None (occurrence: None)
  Receive Date: 20120719
  Receipt Date: 20120612
  Transmission Date: 20120928
  Serious: Yes (Life-Threatening, Other)
  Sender: FDA-Public Use
  Company Number: US-BRISTOL-MYERS SQUIBB COMPANY-16373201

PATIENT
  Age: 25 Year
  Sex: Male

DRUGS (1)
  1. NULOJIX [Suspect]
     Dosage: ADMINISTRED ON:25NOV11,09DEC11,23DEC11,06JAN12. 25NOV11-06-JAN12,19JAN12(DISCON.)
     Dates: start: 20111125, end: 20120119

REACTIONS (1)
  - TRANSPLANT REJECTION [None]
